FAERS Safety Report 6558329-7 (Version None)
Quarter: 2010Q1

REPORT INFORMATION
  Report Type: 
  Country: None (occurrence: None)
  Receive Date: 20100129
  Receipt Date: 20100125
  Transmission Date: 20100710
  Serious: Yes (Other)
  Sender: FDA-Public Use
  Company Number: US-MYLANLABS-2010S1001097

PATIENT
  Age: 33 Year
  Sex: Female

DRUGS (3)
  1. AMNESTEEM [Suspect]
     Indication: ACNE
     Dosage: AVERAGE DAILY DOSE
     Route: 048
     Dates: start: 20100113, end: 20100117
  2. ORAL CONTRACEPTIVE NOS [Concomitant]
  3. ZITHROMAX [Concomitant]
     Indication: UPPER RESPIRATORY TRACT INFECTION
     Dosage: 5 DAYS TREATMENT
     Dates: start: 20100101, end: 20100101

REACTIONS (1)
  - DRUG EXPOSURE DURING PREGNANCY [None]
